FAERS Safety Report 13056570 (Version 2)
Quarter: 2017Q1

REPORT INFORMATION
  Report Type: Report from Study
  Country: US (occurrence: US)
  Receive Date: 20161222
  Receipt Date: 20170112
  Transmission Date: 20170428
  Serious: Yes (Hospitalization)
  Sender: FDA-Public Use
  Company Number: US-ACTELION-A-US2016-146726

PATIENT
  Age: 84 Year
  Sex: Male

DRUGS (4)
  1. REMODULIN [Concomitant]
     Active Substance: TREPROSTINIL
  2. LETAIRIS [Concomitant]
     Active Substance: AMBRISENTAN
  3. OPSUMIT [Suspect]
     Active Substance: MACITENTAN
     Indication: PULMONARY ARTERIAL HYPERTENSION
     Dosage: 10 MG, QD
     Route: 048
     Dates: start: 20160502
  4. ORENITRAM [Concomitant]
     Active Substance: TREPROSTINIL

REACTIONS (10)
  - Haematocrit decreased [Unknown]
  - Platelet count decreased [Unknown]
  - Haemoglobin decreased [Unknown]
  - Renal mass [Recovered/Resolved]
  - Dyspnoea [Recovered/Resolved with Sequelae]
  - Chills [Unknown]
  - Blood calcium decreased [Unknown]
  - Haematuria [Recovered/Resolved with Sequelae]
  - Hyperhidrosis [Unknown]
  - Sleep disorder [Unknown]

NARRATIVE: CASE EVENT DATE: 20161114
